FAERS Safety Report 7316217-2 (Version None)
Quarter: 2011Q1

REPORT INFORMATION
  Report Type: 
  Country: None (occurrence: None)
  Receive Date: 20110225
  Receipt Date: 20110223
  Transmission Date: 20110831
  Serious: Yes (Hospitalization)
  Sender: FDA-Public Use
  Company Number: US-ROCHE-741820

PATIENT
  Sex: Female

DRUGS (4)
  1. PEGINTERFERON ALFA-2A [Suspect]
     Indication: HEPATITIS C
     Route: 065
     Dates: start: 20100922, end: 20110105
  2. RIBAVIRIN [Suspect]
     Indication: HEPATITIS C
     Route: 065
     Dates: start: 20100922, end: 20110105
  3. PEGINTERFERON ALFA-2A [Suspect]
     Route: 065
     Dates: start: 20110202
  4. RIBAVIRIN [Suspect]
     Route: 065
     Dates: start: 20110202

REACTIONS (13)
  - HAEMATEMESIS [None]
  - APPETITE DISORDER [None]
  - ABDOMINAL PAIN [None]
  - HAEMOGLOBIN DECREASED [None]
  - DRUG DOSE OMISSION [None]
  - VOMITING [None]
  - HYPOAESTHESIA ORAL [None]
  - HEADACHE [None]
  - PULSE PRESSURE INCREASED [None]
  - BURNING SENSATION [None]
  - BLOOD POTASSIUM DECREASED [None]
  - BACK PAIN [None]
  - ORAL PAIN [None]
